FAERS Safety Report 6526296-8 (Version None)
Quarter: 2009Q4

REPORT INFORMATION
  Report Type: 
  Country: None (occurrence: None)
  Receive Date: 20091222
  Receipt Date: 20091207
  Transmission Date: 20100525
  Serious: Yes (Hospitalization)
  Sender: FDA-Public Use
  Company Number: CTI_01097_2009

PATIENT
  Age: 3 Year
  Sex: Female
  Weight: 13.5 kg

DRUGS (2)
  1. SPECTRACEF [Suspect]
     Indication: TONSILLITIS
     Dosage: (30 MG TID ORAL)
     Route: 048
     Dates: start: 20090913, end: 20090916
  2. PARACETAMOL [Concomitant]

REACTIONS (4)
  - ABDOMINAL DISTENSION [None]
  - ABDOMINAL PAIN [None]
  - DEHYDRATION [None]
  - FREQUENT BOWEL MOVEMENTS [None]
